FAERS Safety Report 14237685 (Version 1)
Quarter: 2017Q4

REPORT INFORMATION
  Report Type: Spontaneous
  Country: DE (occurrence: DE)
  Receive Date: 20171129
  Receipt Date: 20171129
  Transmission Date: 20180321
  Serious: Yes (Hospitalization)
  Sender: FDA-Public Use
  Company Number: DE-B.I. PHARMACEUTICALS,INC./RIDGEFIELD-2017-BI-063338

PATIENT
  Age: 65 Year
  Sex: Male

DRUGS (2)
  1. CODEINE [Concomitant]
     Active Substance: CODEINE
     Indication: DRUG DEPENDENCE
     Route: 065
  2. OFEV [Suspect]
     Active Substance: NINTEDANIB
     Indication: IDIOPATHIC PULMONARY FIBROSIS
     Route: 065
     Dates: start: 201504

REACTIONS (5)
  - Pneumonia [Unknown]
  - Weight decreased [Unknown]
  - Total lung capacity decreased [Unknown]
  - Diarrhoea [Unknown]
  - Oxygen consumption decreased [Unknown]

NARRATIVE: CASE EVENT DATE: 201707
